FAERS Safety Report 21746078 (Version 1)
Quarter: 2022Q4

REPORT INFORMATION
  Report Type: Report from Study
  Country: US (occurrence: US)
  Receive Date: 20221219
  Receipt Date: 20221219
  Transmission Date: 20230113
  Serious: Yes (Hospitalization, Other)
  Sender: FDA-Public Use
  Company Number: US-TAKEDA-US202010416

PATIENT
  Sex: Female

DRUGS (1)
  1. LANADELUMAB [Suspect]
     Active Substance: LANADELUMAB
     Indication: Hereditary angioedema
     Dosage: 300 MILLIGRAM
     Route: 058
     Dates: start: 20200316

REACTIONS (5)
  - Diabetic ketoacidosis [Unknown]
  - Hereditary angioedema [Unknown]
  - Respiratory tract infection viral [Unknown]
  - Cardiac disorder [Unknown]
  - Off label use [Unknown]
